FAERS Safety Report 19505857 (Version 1)
Quarter: 2021Q3

REPORT INFORMATION
  Report Type: Spontaneous
  Country: US (occurrence: US)
  Receive Date: 20210707
  Receipt Date: 20210707
  Transmission Date: 20211014
  Serious: Yes (Hospitalization)
  Sender: FDA-Public Use
  Company Number: None

PATIENT
  Age: 28 Year
  Sex: Female
  Weight: 53.2 kg

DRUGS (5)
  1. XELJANZ [Suspect]
     Active Substance: TOFACITINIB CITRATE
  2. PREDNISONE. [Concomitant]
     Active Substance: PREDNISONE
  3. VITAMIN C [Concomitant]
     Active Substance: ASCORBIC ACID
  4. CYANOCOBALAMIN (VITAMIN B?12) [Concomitant]
  5. NYSTATIN (MYCOSTATIN) POWDER [Concomitant]

REACTIONS (4)
  - Stoma site ulcer [None]
  - Stoma site haemorrhage [None]
  - Anaemia [None]
  - Mucosal ulceration [None]

NARRATIVE: CASE EVENT DATE: 20210407
